FAERS Safety Report 5354435-3 (Version None)
Quarter: 2007Q2

REPORT INFORMATION
  Report Type: 
  Country: None (occurrence: None)
  Receive Date: 20070612
  Receipt Date: 20070608
  Transmission Date: 20071010
  Serious: Yes (Death, Other)
  Sender: FDA-Public Use
  Company Number: KR-BRISTOL-MYERS SQUIBB COMPANY-13809298

PATIENT
  Age: 63 Year
  Sex: Male

DRUGS (3)
  1. IRBESARTAN [Suspect]
     Indication: HYPERTENSION
     Route: 048
  2. GLIMEPIRIDE [Suspect]
     Indication: DIABETES MELLITUS
     Route: 048
  3. SIMVASTATIN [Suspect]
     Route: 048

REACTIONS (1)
  - MULTIPLE DRUG OVERDOSE [None]
